FAERS Safety Report 7806598-5 (Version None)
Quarter: 2011Q4

REPORT INFORMATION
  Report Type: 
  Country: None (occurrence: None)
  Receive Date: 20111011
  Receipt Date: 20110929
  Transmission Date: 20120403
  Serious: Yes (Other)
  Sender: FDA-Public Use
  Company Number: BR-AMGEN-BRASP2011047136

PATIENT
  Age: 41 Year
  Sex: Male
  Weight: 103 kg

DRUGS (5)
  1. METHOTREXATE [Concomitant]
     Indication: PRODUCT USED FOR UNKNOWN INDICATION
     Dosage: 12.5 MG (5 TABLETS OF 2.5MG), ONCE WEEKLY
     Dates: start: 20080411, end: 20110815
  2. NSAID'S [Concomitant]
     Dosage: UNK
  3. ENBREL [Suspect]
     Dosage: 50 MG, ONCE WEEKLY
     Route: 058
     Dates: start: 20110701, end: 20110815
  4. ENBREL [Suspect]
     Indication: ANKYLOSING SPONDYLITIS
     Dosage: 25 MG, 2X/WEEK
     Route: 058
     Dates: start: 20090401, end: 20110701
  5. PREDNISONE [Concomitant]
     Indication: PRODUCT USED FOR UNKNOWN INDICATION
     Dosage: 10 MG (TWO TABLETS OF 5MG), 1X/DAY
     Dates: start: 20080411, end: 20110815

REACTIONS (8)
  - PLEURAL FLUID ANALYSIS [None]
  - FATIGUE [None]
  - COUGH [None]
  - TUBERCULIN TEST POSITIVE [None]
  - PYREXIA [None]
  - DYSPNOEA [None]
  - PLEURAL EFFUSION [None]
  - TUBERCULOSIS [None]
